FAERS Safety Report 10144767 (Version 1)
Quarter: 2014Q2

REPORT INFORMATION
  Report Type: Spontaneous
  Country: US (occurrence: US)
  Receive Date: 20140430
  Receipt Date: 20140430
  Transmission Date: 20141212
  Serious: No
  Sender: FDA-Public Use
  Company Number: US-SANOFI-AVENTIS-2013SA093931

PATIENT
  Age: 55 Year
  Sex: Male
  Weight: 99.7 kg

DRUGS (2)
  1. ENOXAPARIN SODIUM - WINTHROP [Suspect]
     Indication: HIP ARTHROPLASTY
     Route: 065
  2. OXYCODONE [Concomitant]
     Indication: PAIN
     Route: 065
     Dates: start: 20130620

REACTIONS (5)
  - Rash [Recovered/Resolved]
  - Dizziness [Unknown]
  - Disorientation [Unknown]
  - Hyperhidrosis [Recovered/Resolved]
  - Adverse event [Unknown]
